FAERS Safety Report 18436479 (Version 1)
Quarter: 2020Q4

REPORT INFORMATION
  Report Type: Spontaneous
  Country: CA (occurrence: CA)
  Receive Date: 20201028
  Receipt Date: 20201028
  Transmission Date: 20210114
  Serious: Yes (Death)
  Sender: FDA-Public Use
  Company Number: CA-PFIZER INC-2020023135

PATIENT
  Age: 59 Year
  Sex: Female

DRUGS (13)
  1. SYNTHROID [Concomitant]
     Active Substance: LEVOTHYROXINE SODIUM
     Dosage: 150 UG, DAILY
  2. MORPHINE [Concomitant]
     Active Substance: MORPHINE
     Dosage: 30 MG QAM
  3. FULVESTRANT. [Concomitant]
     Active Substance: FULVESTRANT
     Dosage: UNK
  4. VIT D [Concomitant]
     Active Substance: VITAMIN D NOS
     Dosage: UNK
  5. CALCIUM [Concomitant]
     Active Substance: CALCIUM
     Dosage: UNK
  6. CALCIUM [Concomitant]
     Active Substance: CALCIUM
     Dosage: UNK, 1X/DAY
  7. PANTOLOC [Concomitant]
     Active Substance: PANTOPRAZOLE SODIUM
     Dosage: 40 MG
  8. MAGNESIUM [Concomitant]
     Active Substance: MAGNESIUM
     Dosage: UNK
  9. IBRANCE [Suspect]
     Active Substance: PALBOCICLIB
     Indication: BREAST CANCER METASTATIC
     Dosage: 125 MG, CYCLIC (ONCE DAILY FOR 21 DAYS IN A ROW, STOP FOR 7 DAYS)
     Route: 048
     Dates: start: 20200124
  10. IBRANCE [Suspect]
     Active Substance: PALBOCICLIB
     Dosage: 100 MG, CYCLIC (DAILY X 21 DAYS, OFF 7 DAYS)
     Route: 048
  11. PREDNISONE. [Concomitant]
     Active Substance: PREDNISONE
     Dosage: 10 MG, DAILY
  12. MORPHINE [Concomitant]
     Active Substance: MORPHINE
     Dosage: 15 MG QHS
  13. IRON [Concomitant]
     Active Substance: IRON
     Dosage: UNK

REACTIONS (6)
  - Weight decreased [Unknown]
  - Liver function test increased [Unknown]
  - Blood count abnormal [Not Recovered/Not Resolved]
  - Hypertension [Unknown]
  - Death [Fatal]
  - Body surface area decreased [Unknown]

NARRATIVE: CASE EVENT DATE: 20200108
